FAERS Safety Report 10190630 (Version 1)
Quarter: 2014Q2

REPORT INFORMATION
  Report Type: Report from Study
  Country: ZA (occurrence: ZA)
  Receive Date: 20140523
  Receipt Date: 20140523
  Transmission Date: 20141212
  Serious: Yes (Death, Hospitalization)
  Sender: FDA-Public Use
  Company Number: ZA-ROCHE-1405442

PATIENT
  Age: 53 Year
  Sex: Female

DRUGS (1)
  1. MIRCERA [Suspect]
     Indication: NEPHROGENIC ANAEMIA
     Dosage: LAST DOSE PRIOR TO SAE: /MAY/2014
     Route: 058
     Dates: start: 20120126

REACTIONS (3)
  - Death [Fatal]
  - Bladder cancer [Unknown]
  - Renal failure chronic [Unknown]
